FAERS Safety Report 5694585-5 (Version None)
Quarter: 2008Q2

REPORT INFORMATION
  Report Type: 
  Country: None (occurrence: None)
  Receive Date: 20080404
  Receipt Date: 20080327
  Transmission Date: 20081010
  Serious: Yes (Life-Threatening)
  Sender: FDA-Public Use
  Company Number: US-ROCHE-554001

PATIENT
  Sex: Female

DRUGS (9)
  1. TAMIFLU [Suspect]
     Indication: DRUG USE FOR UNKNOWN INDICATION
     Route: 065
     Dates: start: 20080312, end: 20080317
  2. WARFARIN SODIUM [Concomitant]
     Dosage: DOSAGE: 3 MG FOR SIX DAYS OF WEEK AND 2.5 MG ON SATURDAY.
     Dates: end: 20080318
  3. WARFARIN SODIUM [Concomitant]
     Dosage: DOSAGE: 3 MG FOR SIX DAYS OF WEEK AND 2.5 MG ON SATURDAY.
     Dates: start: 20080319
  4. CITALOPRAM HYDROBROMIDE [Concomitant]
     Route: 048
     Dates: start: 20060919
  5. ATENOLOL [Concomitant]
     Route: 048
     Dates: start: 20050301
  6. ARICEPT [Concomitant]
     Route: 048
     Dates: start: 20060323
  7. FAMOTIDINE [Concomitant]
     Dosage: DOSAGE REPORTED AS 20MG PER NIGHT
     Route: 048
     Dates: start: 20060207
  8. AZITHROMYCIN [Concomitant]
     Dates: start: 20080310
  9. AZITHROMYCIN [Concomitant]
     Dates: start: 20080311, end: 20080314

REACTIONS (1)
  - INTERNATIONAL NORMALISED RATIO INCREASED [None]
